FAERS Safety Report 7874196-3 (Version None)
Quarter: 2011Q4

REPORT INFORMATION
  Report Type: 
  Country: None (occurrence: None)
  Receive Date: 20111030
  Receipt Date: 20110517
  Transmission Date: 20120403
  Serious: No
  Sender: FDA-Public Use
  Company Number: US-AMGEN-USASP2011025486

PATIENT
  Sex: Female

DRUGS (1)
  1. ENBREL [Suspect]
     Indication: RHEUMATOID ARTHRITIS
     Dosage: 50 MG, QWK
     Route: 058
     Dates: start: 20110427, end: 20110427

REACTIONS (5)
  - RESPIRATORY TRACT CONGESTION [None]
  - RHEUMATOID ARTHRITIS [None]
  - COUGH [None]
  - UPPER-AIRWAY COUGH SYNDROME [None]
  - RALES [None]
